FAERS Safety Report 10640995 (Version 1)
Quarter: 2014Q4

REPORT INFORMATION
  Report Type: Spontaneous
  Country: US (occurrence: US)
  Receive Date: 20141209
  Receipt Date: 20141209
  Transmission Date: 20150529
  Serious: Yes (Other)
  Sender: FDA-Public Use
  Company Number: US-PFIZER INC-2014331547

PATIENT
  Age: 60 Year
  Sex: Female

DRUGS (3)
  1. DIMETAPP ND [Suspect]
     Active Substance: LORATADINE
     Dosage: UNK
  2. SILVER SULFADIAZENE [Suspect]
     Active Substance: SILVER SULFADIAZINE
     Dosage: UNK
  3. COMPAZINE [Suspect]
     Active Substance: PROCHLORPERAZINE MALEATE
     Dosage: UNK

REACTIONS (4)
  - Haemolytic anaemia [Unknown]
  - Anxiety [Unknown]
  - Vomiting [Unknown]
  - Drug hypersensitivity [Unknown]
